FAERS Safety Report 25955385 (Version 1)
Quarter: 2025Q4

REPORT INFORMATION
  Report Type: Spontaneous
  Country: GB (occurrence: GB)
  Receive Date: 20251024
  Receipt Date: 20251024
  Transmission Date: 20260117
  Serious: Yes (Other)
  Sender: IDORSIA PHARMACEUTICALS
  Company Number: GB-MHRA-EMIS-4294-cba7c2b9-e07f-4e30-9e0c-d78410c21f6b

PATIENT
  Age: 46 Year
  Sex: Male
  Weight: 57 kg

DRUGS (4)
  1. QUVIVIQ [Suspect]
     Active Substance: DARIDOREXANT
     Indication: Product used for unknown indication
     Dosage: 50 MG, QD
     Route: 048
     Dates: start: 20250701
  2. FENTANYL [Concomitant]
     Active Substance: FENTANYL
     Dosage: 100 UG TRANSDERMAL PATCH, EVERY 72 H
     Dates: start: 20250415, end: 20250528
  3. OXYCODONE [Concomitant]
     Active Substance: OXYCODONE
     Dosage: TAKE ONE TWICE DAILY
     Dates: start: 20250415
  4. FENTANYL [Concomitant]
     Active Substance: FENTANYL
     Dosage: APPLY ONE PATCH EVERY 72 HOURS AS DIRECTED. REMOVE OLD PATCH BEFORE APPLYING NEW PATCH
     Dates: start: 20250507

REACTIONS (2)
  - Memory impairment [Unknown]
  - Hunger [Unknown]
